FAERS Safety Report 23957955 (Version 1)
Quarter: 2024Q2

REPORT INFORMATION
  Report Type: Spontaneous
  Country: GB (occurrence: GB)
  Receive Date: 20240610
  Receipt Date: 20240610
  Transmission Date: 20240717
  Serious: Yes (Death, Other)
  Sender: FDA-Public Use
  Company Number: GB-JNJFOC-20240615174

PATIENT
  Age: 8 Decade
  Sex: Male

DRUGS (1)
  1. AKEEGA [Suspect]
     Active Substance: ABIRATERONE ACETATE\NIRAPARIB TOSYLATE MONOHYDRATE
     Indication: Product used for unknown indication
     Dosage: HAD BEEN FOR ROUGHLY 6 MONTHS
     Route: 048

REACTIONS (4)
  - Cardiac arrest [Fatal]
  - Pancytopenia [Unknown]
  - Neutropenia [Unknown]
  - Malaise [Unknown]
